FAERS Safety Report 8085976-6 (Version None)
Quarter: 2012Q1

REPORT INFORMATION
  Report Type: 
  Country: None (occurrence: None)
  Receive Date: 20120128
  Receipt Date: 20110413
  Transmission Date: 20120608
  Serious: No
  Sender: FDA-Public Use
  Company Number: US-ABBOTT-11P-163-0718875-00

PATIENT
  Age: 48 Year
  Sex: Female

DRUGS (2)
  1. HUMIRA [Suspect]
     Indication: PSORIATIC ARTHROPATHY
     Dates: start: 20110101, end: 20110331
  2. HUMIRA [Suspect]
     Indication: PSORIASIS

REACTIONS (1)
  - PSORIASIS [None]
